APPROVED DRUG PRODUCT: METHYLPREDNISOLONE ACETATE
Active Ingredient: METHYLPREDNISOLONE ACETATE
Strength: 80MG/ML
Dosage Form/Route: INJECTABLE;INJECTION
Application: A219145 | Product #001 | TE Code: AB
Applicant: HIKMA PHARMACEUTICALS USA INC
Approved: Apr 16, 2025 | RLD: No | RS: No | Type: RX